FAERS Safety Report 6693111-1 (Version None)
Quarter: 2010Q2

REPORT INFORMATION
  Report Type: 
  Country: None (occurrence: None)
  Receive Date: 20100422
  Receipt Date: 20100420
  Transmission Date: 20101027
  Serious: Yes (Death, Other)
  Sender: FDA-Public Use
  Company Number: JP-ELI_LILLY_AND_COMPANY-JP201004004481

PATIENT
  Age: 79 Year
  Sex: Male

DRUGS (1)
  1. GEMZAR [Suspect]
     Indication: PLEURAL MESOTHELIOMA
     Route: 042

REACTIONS (9)
  - BRONCHOPNEUMONIA [None]
  - CHEST X-RAY ABNORMAL [None]
  - METASTASES TO ADRENALS [None]
  - METASTASES TO PERITONEUM [None]
  - METASTASES TO RETROPERITONEUM [None]
  - METASTASES TO SMALL INTESTINE [None]
  - METASTASES TO THE MEDIASTINUM [None]
  - NO THERAPEUTIC RESPONSE [None]
  - OFF LABEL USE [None]
